FAERS Safety Report 14207895 (Version 1)
Quarter: 2017Q4

REPORT INFORMATION
  Report Type: Spontaneous
  Country: JP (occurrence: JP)
  Receive Date: 20171121
  Receipt Date: 20171121
  Transmission Date: 20180321
  Serious: Yes (Death, Life-Threatening, Hospitalization, Other)
  Sender: FDA-Public Use
  Company Number: JP-ASTELLAS-2017JP021869AA

PATIENT
  Age: 2 Year
  Sex: Male
  Weight: 10 kg

DRUGS (52)
  1. GLYCYRON /00467201/ [Suspect]
     Active Substance: AMMONIUM GLYCYRRHIZATE
     Indication: LIVER DISORDER
     Dosage: 0.99 DF, ONCE DAILY
     Route: 048
     Dates: start: 20140314, end: 20170427
  2. TIZANIDINE                         /00740702/ [Suspect]
     Active Substance: TIZANIDINE HYDROCHLORIDE
     Indication: HYPERTONIA
     Dosage: 0.4 MG, ONCE DAILY
     Route: 048
     Dates: start: 20150415
  3. PREDNISOLONE. [Suspect]
     Active Substance: PREDNISOLONE
     Indication: GRAFT VERSUS HOST DISEASE
     Route: 048
     Dates: start: 20150904
  4. DAIKENCHUTO [Suspect]
     Active Substance: HERBALS
     Indication: GASTROINTESTINAL MOTILITY DISORDER
     Route: 048
     Dates: start: 20160427, end: 20170427
  5. RIKKUNSHITO                        /08041001/ [Suspect]
     Active Substance: HERBALS
     Indication: GASTROINTESTINAL MOTILITY DISORDER
     Dosage: 0.198 G, UNKNOWN FREQ.
     Route: 065
     Dates: start: 20160415
  6. FAMOTIDINE. [Suspect]
     Active Substance: FAMOTIDINE
     Route: 065
     Dates: start: 20151113, end: 20160415
  7. MEROPENEM. [Concomitant]
     Active Substance: MEROPENEM
     Indication: PRODUCT USED FOR UNKNOWN INDICATION
     Dosage: UNK UNK, UNKNOWN FREQ.
     Route: 065
  8. E KEPPRA [Suspect]
     Active Substance: LEVETIRACETAM
     Indication: EPILEPSY
     Route: 048
     Dates: start: 20150713, end: 20151001
  9. E KEPPRA [Suspect]
     Active Substance: LEVETIRACETAM
     Route: 048
     Dates: start: 20151029
  10. URSODEOXYCHOLIC ACID [Suspect]
     Active Substance: URSODIOL
     Route: 048
     Dates: end: 20170427
  11. GABALON [Suspect]
     Active Substance: BACLOFEN
     Indication: MUSCLE TONE DISORDER
     Dosage: 1 MG IN THE MORNING, 1 MG AT NOONTIME, 1.4 MG IN THE EVENING, THRICE DAILY
     Route: 048
     Dates: start: 20151027, end: 20160725
  12. BOTOX [Suspect]
     Active Substance: ONABOTULINUMTOXINA
     Indication: MUSCLE SPASMS
     Dosage: 60 U, ONCE DAILY
     Route: 030
     Dates: start: 20160317, end: 20160428
  13. ULCERLMIN [Suspect]
     Active Substance: SUCRALFATE
     Indication: GASTRIC ULCER
     Dosage: 0.999 G, ONCE DAILY
     Route: 048
     Dates: start: 20160317, end: 20170427
  14. PREDNISOLONE. [Suspect]
     Active Substance: PREDNISOLONE
     Route: 048
     Dates: end: 20160615
  15. PROGRAF [Suspect]
     Active Substance: TACROLIMUS\TACROLIMUS ANHYDROUS
     Dosage: 0.5 MG, ONCE DAILY
     Route: 048
     Dates: start: 20161108, end: 20170427
  16. SINGULAIR [Suspect]
     Active Substance: MONTELUKAST SODIUM
     Indication: ASTHMA
     Route: 048
     Dates: start: 20150311, end: 20170427
  17. MARZULENE /01184501/ [Suspect]
     Active Substance: GLUTAMINE\SODIUM DECAHYDROAZULENE-1-SULFONATE
     Indication: GASTRODUODENAL ULCER
     Dosage: 0.498 G, ONCE DAILY
     Route: 048
     Dates: start: 20150719, end: 20170427
  18. FAMOTIDINE. [Suspect]
     Active Substance: FAMOTIDINE
     Indication: PRODUCT USED FOR UNKNOWN INDICATION
     Route: 065
     Dates: start: 20150910, end: 20150915
  19. CELLCEPT [Suspect]
     Active Substance: MYCOPHENOLATE MOFETIL\MYCOPHENOLATE MOFETIL HYDROCHLORIDE
     Indication: PRODUCT USED FOR UNKNOWN INDICATION
     Route: 065
     Dates: start: 20151008, end: 20160415
  20. PROMAC                             /01312301/ [Concomitant]
     Active Substance: POLAPREZINC
     Indication: PRODUCT USED FOR UNKNOWN INDICATION
     Dosage: UNK UNK, UNKNOWN FREQ.
     Route: 065
  21. OXYGEN. [Concomitant]
     Active Substance: OXYGEN
     Indication: PRODUCT USED FOR UNKNOWN INDICATION
     Dosage: UNK UNK, UNKNOWN FREQ.
     Route: 065
  22. AMIKACIN SULFATE. [Concomitant]
     Active Substance: AMIKACIN SULFATE
     Indication: PRODUCT USED FOR UNKNOWN INDICATION
     Dosage: UNK UNK, UNKNOWN FREQ.
     Route: 065
  23. VICCILLIN                          /00000501/ [Concomitant]
     Indication: PRODUCT USED FOR UNKNOWN INDICATION
     Dosage: UNK UNK, UNKNOWN FREQ.
     Route: 065
  24. BRAZAVES [Suspect]
     Active Substance: MIGLUSTAT
     Route: 048
     Dates: start: 20150531, end: 20160615
  25. E KEPPRA [Suspect]
     Active Substance: LEVETIRACETAM
     Route: 048
     Dates: end: 20151113
  26. HYALURONATE NA [Suspect]
     Active Substance: HYALURONATE SODIUM
     Indication: DRY EYE
     Route: 047
     Dates: start: 20150521, end: 20170427
  27. RIVOTRIL [Suspect]
     Active Substance: CLONAZEPAM
     Indication: EPILEPSY
     Dosage: 0.8 MG, ONCE DAILY
     Route: 048
     Dates: start: 20151110, end: 20170427
  28. DAIPHEN [Suspect]
     Active Substance: SULFAMETHOXAZOLE\TRIMETHOPRIM
     Indication: NEUTROPENIA
     Dosage: 0.4 MG, TWICE DAILY
     Route: 065
     Dates: start: 20150415
  29. DAIPHEN [Suspect]
     Active Substance: SULFAMETHOXAZOLE\TRIMETHOPRIM
     Dosage: 0.5 MG, TWICE DAILY
     Route: 065
     Dates: end: 20160415
  30. TAKEPRON [Concomitant]
     Active Substance: LANSOPRAZOLE
     Indication: PRODUCT USED FOR UNKNOWN INDICATION
     Dosage: UNK UNK, UNKNOWN FREQ.
     Route: 065
  31. BIOFERMIN R [Concomitant]
     Active Substance: BACILLUS SUBTILIS\LACTOBACILLUS ACIDOPHILUS\STREPTOCOCCUS FAECAIS
     Indication: PRODUCT USED FOR UNKNOWN INDICATION
     Dosage: UNK UNK, UNKNOWN FREQ.
     Route: 065
  32. BENFOTIAMINE [Concomitant]
     Active Substance: BENFOTIAMINE
     Indication: PRODUCT USED FOR UNKNOWN INDICATION
     Dosage: UNK UNK, UNKNOWN FREQ.
     Route: 065
  33. PULMICORT TURBUHALER [Suspect]
     Active Substance: BUDESONIDE
     Indication: ASTHMA
     Dosage: 0.5 MG, ONCE DAILY
     Route: 055
     Dates: start: 20150311, end: 20160615
  34. BICARBONATE [Suspect]
     Active Substance: BICARBONATE ION
     Indication: PRODUCT USED FOR UNKNOWN INDICATION
     Dosage: 0.5 G, ONCE DAILY
     Route: 048
     Dates: start: 20150603, end: 20170427
  35. TIZANIDINE                         /00740702/ [Suspect]
     Active Substance: TIZANIDINE HYDROCHLORIDE
     Dosage: 0.8 MG IN THE MORNING, 0.8 MG AT NOONTIME AND 1 MG IN THE EVENING
     Route: 048
     Dates: end: 20170427
  36. CARBOCISTEINE [Concomitant]
     Active Substance: CARBOCYSTEINE
     Indication: PRODUCT USED FOR UNKNOWN INDICATION
     Dosage: UNK UNK, UNKNOWN FREQ.
     Route: 065
  37. MUCOSAL                            /00546002/ [Concomitant]
     Indication: PRODUCT USED FOR UNKNOWN INDICATION
     Dosage: UNK UNK, UNKNOWN FREQ.
     Route: 065
  38. WIDECILLIN                         /00249602/ [Concomitant]
     Indication: PRODUCT USED FOR UNKNOWN INDICATION
     Dosage: UNK UNK, UNKNOWN FREQ.
     Route: 065
  39. CEFEPIME HYDROCHLORIDE. [Concomitant]
     Active Substance: CEFEPIME HYDROCHLORIDE
     Indication: PRODUCT USED FOR UNKNOWN INDICATION
     Dosage: UNK UNK, UNKNOWN FREQ.
     Route: 065
  40. MIDAZOLAM [Concomitant]
     Active Substance: MIDAZOLAM HYDROCHLORIDE
     Indication: CLONIC CONVULSION
     Dosage: 0.1 MG/KG, 2 TIMES
     Route: 042
     Dates: start: 20150617
  41. BRAZAVES [Suspect]
     Active Substance: MIGLUSTAT
     Route: 048
     Dates: start: 20160627, end: 20170427
  42. URSODEOXYCHOLIC ACID [Suspect]
     Active Substance: URSODIOL
     Indication: LIVER DISORDER
     Route: 048
     Dates: start: 20130127
  43. EXCEGRAN [Suspect]
     Active Substance: ZONISAMIDE
     Indication: EPILEPSY
     Route: 048
     Dates: start: 20150917, end: 20170427
  44. BIOFERMIN                          /01617201/ [Suspect]
     Active Substance: BACILLUS SUBTILIS\LACTOBACILLUS ACIDOPHILUS\STREPTOCOCCUS FAECAIS
     Indication: DIARRHOEA
     Route: 048
     Dates: start: 20160219, end: 20170309
  45. SODIUM ALGINATE [Concomitant]
     Active Substance: SODIUM ALGINATE
     Indication: PRODUCT USED FOR UNKNOWN INDICATION
     Dosage: UNK UNK, UNKNOWN FREQ.
     Route: 065
  46. ADEROXAL [Concomitant]
     Active Substance: PYRIDOXAL PHOSPHATE
     Indication: PRODUCT USED FOR UNKNOWN INDICATION
     Dosage: UNK UNK, UNKNOWN FREQ.
     Route: 065
  47. ALFACALCIDOL [Concomitant]
     Active Substance: ALFACALCIDOL
     Indication: RADIUS FRACTURE
     Dosage: UNK UNK, UNKNOWN FREQ.
     Route: 065
     Dates: start: 2017
  48. PROGRAF [Suspect]
     Active Substance: TACROLIMUS\TACROLIMUS ANHYDROUS
     Indication: LIVER TRANSPLANT
     Dosage: 0.2 MG, ONCE DAILY
     Route: 048
     Dates: start: 20120919, end: 20161107
  49. BRAZAVES [Suspect]
     Active Substance: MIGLUSTAT
     Indication: NIEMANN-PICK DISEASE
     Route: 048
     Dates: start: 20150428, end: 20150530
  50. L-CARNITIN                         /00878602/ [Concomitant]
     Indication: PRODUCT USED FOR UNKNOWN INDICATION
     Dosage: UNK UNK, UNKNOWN FREQ.
     Route: 065
  51. URALYT U                           /01675401/ [Concomitant]
     Active Substance: POTASSIUM CITRATE\TRISODIUM CITRATE DIHYDRATE
     Indication: PRODUCT USED FOR UNKNOWN INDICATION
     Dosage: UNK UNK, UNKNOWN FREQ.
     Route: 065
  52. BISOLVON [Concomitant]
     Active Substance: BROMHEXINE HYDROCHLORIDE
     Indication: PRODUCT USED FOR UNKNOWN INDICATION
     Dosage: UNK UNK, UNKNOWN FREQ.
     Route: 065

REACTIONS (18)
  - Tracheal haemorrhage [Fatal]
  - Liver transplant rejection [Recovering/Resolving]
  - Pneumonia aspiration [Recovered/Resolved]
  - Epilepsy [Recovering/Resolving]
  - Status epilepticus [Recovering/Resolving]
  - Respiratory tract infection [Fatal]
  - Autoimmune neutropenia [Not Recovered/Not Resolved]
  - Disseminated intravascular coagulation [Fatal]
  - Multiple organ dysfunction syndrome [Not Recovered/Not Resolved]
  - Drug-induced liver injury [Recovering/Resolving]
  - Nasopharyngitis [Recovering/Resolving]
  - Respiratory failure [Fatal]
  - Hepatic function abnormal [Recovered/Resolved]
  - Radius fracture [Not Recovered/Not Resolved]
  - Urinary tract infection [Recovered/Resolved]
  - Hypercapnia [Not Recovered/Not Resolved]
  - Transfusion [Unknown]
  - Pyrexia [Recovering/Resolving]

NARRATIVE: CASE EVENT DATE: 20150617
